FAERS Safety Report 18015030 (Version 1)
Quarter: 2020Q3

REPORT INFORMATION
  Report Type: Spontaneous
  Country: US (occurrence: US)
  Receive Date: 20200713
  Receipt Date: 20200713
  Transmission Date: 20201103
  Serious: Yes (Death, Other)
  Sender: FDA-Public Use
  Company Number: US-PURDUE-USA-2020-0155510

PATIENT
  Age: 58 Year
  Sex: Male

DRUGS (2)
  1. DILAUDID [Suspect]
     Active Substance: HYDROMORPHONE HYDROCHLORIDE
     Indication: PRODUCT USED FOR UNKNOWN INDICATION
     Dosage: UNK, NOCTE
     Route: 048
  2. OXYCONTIN [Suspect]
     Active Substance: OXYCODONE HYDROCHLORIDE
     Indication: OESOPHAGEAL CARCINOMA
     Dosage: 640 MG, TID
     Route: 048
     Dates: start: 2003

REACTIONS (4)
  - Weight decreased [Unknown]
  - Drug dependence [Unknown]
  - Personality change [Unknown]
  - Death [Fatal]

NARRATIVE: CASE EVENT DATE: 20050907
